FAERS Safety Report 7530467-1 (Version None)
Quarter: 2011Q2

REPORT INFORMATION
  Report Type: 
  Country: None (occurrence: None)
  Receive Date: 20110607
  Receipt Date: 20110513
  Transmission Date: 20111010
  Serious: Yes (Other)
  Sender: FDA-Public Use
  Company Number: US-BAYER-2011-042424

PATIENT
  Sex: Male

DRUGS (1)
  1. ALEVE (CAPLET) [Suspect]
     Dosage: UNK
     Route: 048

REACTIONS (5)
  - DYSPNOEA [None]
  - HYPERSENSITIVITY [None]
  - CHEST PAIN [None]
  - SWELLING FACE [None]
  - DRUG HYPERSENSITIVITY [None]
